FAERS Safety Report 18617678 (Version 2)
Quarter: 2020Q4

REPORT INFORMATION
  Report Type: Report from Study
  Country: None (occurrence: JP)
  Receive Date: 20201215
  Receipt Date: 20201219
  Transmission Date: 20210114
  Serious: Yes (Other)
  Sender: FDA-Public Use
  Company Number: JP-ABBVIE-20K-087-3528220-00

PATIENT
  Sex: Male
  Weight: 64 kg

DRUGS (6)
  1. BETAMETHASONE VALERATE;GENTAMICIN SULFATE [Concomitant]
     Active Substance: BETAMETHASONE VALERATE\GENTAMICIN SULFATE
     Indication: PROPHYLAXIS
     Dosage: Q.S.
     Route: 061
  2. CARBIDOPA/LEVODOPA [Concomitant]
     Active Substance: CARBIDOPA\LEVODOPA
     Indication: PARKINSON^S DISEASE
     Route: 048
     Dates: start: 20171110
  3. DUODOPA [Suspect]
     Active Substance: CARBIDOPA\LEVODOPA
     Dosage: CD: 2.2 ML / HR X 16 HRS
     Route: 050
     Dates: start: 20171110
  4. ROTIGOTINE [Concomitant]
     Active Substance: ROTIGOTINE
     Indication: PRODUCT USED FOR UNKNOWN INDICATION
     Route: 062
  5. DUODOPA [Suspect]
     Active Substance: CARBIDOPA\LEVODOPA
     Indication: PARKINSON^S DISEASE
     Route: 050
     Dates: start: 20170519, end: 20171110
  6. MAGNESIUM OXIDE. [Concomitant]
     Active Substance: MAGNESIUM OXIDE
     Indication: PRODUCT USED FOR UNKNOWN INDICATION
     Route: 048

REACTIONS (13)
  - Malaise [Unknown]
  - Nausea [Unknown]
  - Mobility decreased [Unknown]
  - Incorrect route of product administration [Unknown]
  - Abdominal distension [Unknown]
  - Drug ineffective [Unknown]
  - Off label use [Unknown]
  - Pulmonary embolism [Unknown]
  - Nasopharyngitis [Unknown]
  - Device kink [Recovered/Resolved]
  - Vomiting [Unknown]
  - Dyspepsia [Unknown]
  - Drug ineffective [Recovered/Resolved]

NARRATIVE: CASE EVENT DATE: 201709
